FAERS Safety Report 12495604 (Version 2)
Quarter: 2016Q3

REPORT INFORMATION
  Report Type: Spontaneous
  Country: IT (occurrence: IT)
  Receive Date: 20160624
  Receipt Date: 20160725
  Transmission Date: 20161109
  Serious: Yes (Hospitalization)
  Sender: FDA-Public Use
  Company Number: IT-PFIZER INC-2016304816

PATIENT
  Age: 61 Year
  Sex: Male

DRUGS (8)
  1. PAROXETINE. [Concomitant]
     Active Substance: PAROXETINE
  2. TAVOR (LORAZEPAM) [Suspect]
     Active Substance: LORAZEPAM
     Dosage: 1 MG 10 DF
     Route: 048
     Dates: start: 20160613, end: 20160613
  3. OLANZAPINE. [Concomitant]
     Active Substance: OLANZAPINE
  4. TAVOR (LORAZEPAM) [Suspect]
     Active Substance: LORAZEPAM
     Indication: DRUG ABUSE
     Dosage: 2.5 MG,  18 DF
     Route: 048
     Dates: start: 20160613, end: 20160613
  5. SURMONTIL [Concomitant]
     Active Substance: TRIMIPRAMINE MALEATE
  6. SYCREST [Concomitant]
     Active Substance: ASENAPINE MALEATE
  7. DEPAKIN [Concomitant]
     Active Substance: VALPROATE SODIUM
  8. MUTABON [Concomitant]
     Active Substance: AMITRIPTYLINE HYDROCHLORIDE\PERPHENAZINE

REACTIONS (5)
  - Sopor [Recovered/Resolved]
  - Drug abuse [Recovered/Resolved]
  - Suicide attempt [Recovered/Resolved]
  - Psychomotor skills impaired [Recovered/Resolved]
  - Speech disorder [Recovered/Resolved]

NARRATIVE: CASE EVENT DATE: 20160613
